FAERS Safety Report 21971447 (Version 1)
Quarter: 2023Q1

REPORT INFORMATION
  Report Type: Spontaneous
  Country: US (occurrence: US)
  Receive Date: 20230209
  Receipt Date: 20230209
  Transmission Date: 20230418
  Serious: No
  Sender: FDA-Public Use
  Company Number: US-BRISTOL-MYERS SQUIBB COMPANY-2023-018877

PATIENT
  Age: 74 Year
  Sex: Male

DRUGS (1)
  1. THALOMID [Suspect]
     Active Substance: THALIDOMIDE
     Indication: Plasma cell myeloma
     Dosage: TAKE 1 WHOLE  CAPSULE BY MOUTH AT BEDTIME FOR 28 DAYS. TAKE ON AN EMPTY STOMACH AT LEAST ONE HOUR AF
     Route: 048

REACTIONS (1)
  - Nausea [Unknown]
